FAERS Safety Report 10577845 (Version 3)
Quarter: 2015Q1

REPORT INFORMATION
  Report Type: Spontaneous
  Country: AU (occurrence: AU)
  Receive Date: 20141111
  Receipt Date: 20150127
  Transmission Date: 20150720
  Serious: Yes (Death, Hospitalization, Other)
  Sender: FDA-Public Use
  Company Number: AU-AMGEN-AUSSP2014086576

PATIENT
  Age: 77 Year
  Sex: Female

DRUGS (1)
  1. PROLIA [Suspect]
     Active Substance: DENOSUMAB
     Indication: OSTEOPOROSIS POSTMENOPAUSAL
     Dosage: 60 MG, Q6MO
     Route: 065
     Dates: start: 201306

REACTIONS (13)
  - Sepsis [Fatal]
  - Haematemesis [Unknown]
  - Renal failure [Unknown]
  - Decubitus ulcer [Unknown]
  - Bedridden [Unknown]
  - Paraesthesia oral [Unknown]
  - Hypokalaemia [Unknown]
  - Dysphagia [Unknown]
  - Asthenia [Unknown]
  - Hypocalcaemia [Unknown]
  - Hypomagnesaemia [Unknown]
  - Malnutrition [Unknown]
  - Hypophagia [Unknown]
